FAERS Safety Report 19646060 (Version 1)
Quarter: 2021Q3

REPORT INFORMATION
  Report Type: Spontaneous
  Country: US (occurrence: US)
  Receive Date: 20210802
  Receipt Date: 20210802
  Transmission Date: 20211014
  Serious: No
  Sender: FDA-Public Use
  Company Number: None

PATIENT
  Age: 64 Year
  Sex: Male
  Weight: 105 kg

DRUGS (1)
  1. TRAZODONE (TRAZODONE HCL 100MG TAB) [Suspect]
     Active Substance: TRAZODONE HYDROCHLORIDE
     Indication: DEPRESSION
     Route: 048
     Dates: start: 20201104, end: 20210728

REACTIONS (3)
  - Syncope [None]
  - Dizziness [None]
  - Orthostatic hypotension [None]

NARRATIVE: CASE EVENT DATE: 20210729
